FAERS Safety Report 6015496-1 (Version None)
Quarter: 2008Q4

REPORT INFORMATION
  Report Type: 
  Country: None (occurrence: None)
  Receive Date: 20081216
  Receipt Date: 20080918
  Transmission Date: 20090506
  Serious: Yes (Other)
  Sender: FDA-Public Use
  Company Number: US-WYE-H06055108

PATIENT
  Age: 24 Year
  Sex: Male
  Weight: 99.88 kg

DRUGS (4)
  1. EFFEXOR XR [Suspect]
     Indication: DEPRESSION
     Dosage: 75 MG 2X PER 1 DAY, ORAL ; ORAL
     Route: 048
     Dates: start: 20070101, end: 20070101
  2. EFFEXOR XR [Suspect]
     Indication: DEPRESSION
     Dosage: 75 MG 2X PER 1 DAY, ORAL ; ORAL
     Route: 048
     Dates: start: 20070101
  3. ATIVAN [Concomitant]
  4. AMBIEN [Concomitant]

REACTIONS (5)
  - ABNORMAL BEHAVIOUR [None]
  - AGGRESSION [None]
  - AGITATION [None]
  - HOSTILITY [None]
  - SUICIDAL IDEATION [None]
